FAERS Safety Report 18234482 (Version 1)
Quarter: 2020Q3

REPORT INFORMATION
  Report Type: Spontaneous
  Country: JP (occurrence: JP)
  Receive Date: 20200904
  Receipt Date: 20200904
  Transmission Date: 20201103
  Serious: Yes (Other)
  Sender: FDA-Public Use
  Company Number: JP-UCBSA-2020030565

PATIENT
  Age: 72 Year
  Sex: Female

DRUGS (8)
  1. VIMPAT [Suspect]
     Active Substance: LACOSAMIDE
     Indication: EPILEPSY
     Dosage: 50 MILLIGRAM, 2X/DAY (BID)
     Route: 048
     Dates: end: 2019
  2. TEGRETOL [Suspect]
     Active Substance: CARBAMAZEPINE
     Dosage: 400 MILLIGRAM, DAILY
     Dates: start: 2019, end: 20190823
  3. VIMPAT [Suspect]
     Active Substance: LACOSAMIDE
     Dosage: 200 MILLIGRAM, DAILY
     Route: 048
     Dates: start: 2019
  4. AMLODIPINE [Concomitant]
     Active Substance: AMLODIPINE BESYLATE
     Indication: PRODUCT USED FOR UNKNOWN INDICATION
     Dosage: 2.5 MILLIGRAM, DAILY
  5. ALEVIATIN [PHENYTOIN] [Suspect]
     Active Substance: PHENYTOIN
     Indication: PRODUCT USED FOR UNKNOWN INDICATION
     Dosage: 100 MILLIGRAM, DAILY
     Dates: end: 201905
  6. TEGRETOL [Suspect]
     Active Substance: CARBAMAZEPINE
     Indication: PRODUCT USED FOR UNKNOWN INDICATION
     Dosage: 600 MILLIGRAM, DAILY
     Dates: end: 2019
  7. E KEPPRA [Concomitant]
     Active Substance: LEVETIRACETAM
     Indication: PRODUCT USED FOR UNKNOWN INDICATION
     Dosage: 2000 MILLIGRAM, DAILY
     Route: 048
  8. E KEPPRA [Concomitant]
     Active Substance: LEVETIRACETAM
     Dosage: 3000 MILLIGRAM, DAILY
     Route: 048
     Dates: start: 20190823

REACTIONS (4)
  - Atrial fibrillation [Recovered/Resolved]
  - Sinus node dysfunction [Recovered/Resolved]
  - Sinus bradycardia [Recovered/Resolved]
  - Sinus arrest [Recovered/Resolved]

NARRATIVE: CASE EVENT DATE: 20190823
